FAERS Safety Report 7415036-6 (Version None)
Quarter: 2011Q2

REPORT INFORMATION
  Report Type: 
  Country: None (occurrence: None)
  Receive Date: 20110414
  Receipt Date: 20110405
  Transmission Date: 20111010
  Serious: Yes (Hospitalization, Other)
  Sender: FDA-Public Use
  Company Number: US-PFIZER INC-2011061546

PATIENT
  Sex: Male

DRUGS (2)
  1. REMERON [Suspect]
     Dosage: 30 MG, 1X/DAY
     Dates: start: 20110301, end: 20110317
  2. PRISTIQ [Suspect]
     Indication: DEPRESSION
     Dosage: 50 MG, 1X/DAY
     Dates: start: 20110301, end: 20110317

REACTIONS (2)
  - SUICIDAL BEHAVIOUR [None]
  - THROMBOCYTOPENIA [None]
